FAERS Safety Report 9382357 (Version 2)
Quarter: 2013Q3

REPORT INFORMATION
  Report Type: Spontaneous
  Country: CN (occurrence: CN)
  Receive Date: 20130703
  Receipt Date: 20130709
  Transmission Date: 20140515
  Serious: Yes (Hospitalization, Other)
  Sender: FDA-Public Use
  Company Number: CN-PFIZER INC-2013194846

PATIENT
  Age: 83 Year
  Sex: Female
  Weight: 50 kg

DRUGS (3)
  1. ZELDOX [Suspect]
     Indication: DEPRESSION
     Dosage: 40 MG, 2X/DAY
     Route: 048
     Dates: start: 20130522, end: 20130525
  2. DULOXETINE [Suspect]
     Dosage: 60 MG, ON THE MORNING
     Dates: start: 20130522
  3. HALOPERIDOL [Concomitant]
     Dosage: UNK

REACTIONS (20)
  - Overdose [Not Recovered/Not Resolved]
  - Pneumonia [Not Recovered/Not Resolved]
  - Breath sounds abnormal [Unknown]
  - White blood cell count increased [Unknown]
  - Urinary tract infection [Unknown]
  - Depressed level of consciousness [Recovered/Resolved]
  - Muscle rigidity [Recovered/Resolved]
  - Muscle spasms [Recovered/Resolved]
  - Throat tightness [Recovered/Resolved]
  - Dysphagia [Recovered/Resolved]
  - Dyspnoea [Recovered/Resolved]
  - Staring [Recovered/Resolved]
  - Trismus [Recovered/Resolved]
  - Amimia [Recovered/Resolved]
  - Faecal incontinence [Not Recovered/Not Resolved]
  - Urinary incontinence [Not Recovered/Not Resolved]
  - Extrapyramidal disorder [Not Recovered/Not Resolved]
  - Vision blurred [Recovered/Resolved]
  - Musculoskeletal stiffness [Not Recovered/Not Resolved]
  - Weight decreased [Unknown]
